FAERS Safety Report 4869792-1 (Version None)
Quarter: 2005Q4

REPORT INFORMATION
  Report Type: 
  Country: None (occurrence: None)
  Receive Date: 20051223
  Receipt Date: 20051215
  Transmission Date: 20060501
  Serious: Yes (Death)
  Sender: FDA-Public Use
  Company Number: 2005BI018974

PATIENT
  Sex: Female

DRUGS (9)
  1. AMEVIVE [Suspect]
     Indication: PSORIASIS
     Dosage: SEE IMAGE
     Route: 030
     Dates: start: 20030731, end: 20031030
  2. AMEVIVE [Suspect]
     Indication: PSORIASIS
     Dosage: SEE IMAGE
     Route: 030
     Dates: start: 20040615, end: 20040824
  3. IMPRAMINE HCL [Concomitant]
  4. DEXEDRINE [Concomitant]
  5. XANAX [Concomitant]
  6. FIORECET [Concomitant]
  7. PREMARIN [Concomitant]
  8. SUDAFED 12 HOUR [Concomitant]
  9. AEGGESTIN [Concomitant]

REACTIONS (1)
  - DEATH [None]
